FAERS Safety Report 5485290-9 (Version None)
Quarter: 2007Q4

REPORT INFORMATION
  Report Type: 
  Country: None (occurrence: None)
  Receive Date: 20071015
  Receipt Date: 20071009
  Transmission Date: 20080405
  Serious: Yes (Other)
  Sender: FDA-Public Use
  Company Number: JP-AVENTIS-200712624JP

PATIENT
  Age: 57 Year
  Sex: Male

DRUGS (3)
  1. GLYBURIDE [Suspect]
     Indication: DIABETES MELLITUS
     Route: 048
  2. GLYBURIDE [Suspect]
     Route: 048
  3. MELBIN                             /00082702/ [Concomitant]
     Indication: DIABETES MELLITUS

REACTIONS (2)
  - PYREXIA [None]
  - RHABDOMYOLYSIS [None]
